FAERS Safety Report 16860933 (Version 1)
Quarter: 2019Q3

REPORT INFORMATION
  Report Type: Spontaneous
  Country: US (occurrence: US)
  Receive Date: 20190927
  Receipt Date: 20190927
  Transmission Date: 20191005
  Serious: Yes (Death)
  Sender: FDA-Public Use
  Company Number: US-SERB S.A.S.-2074981

PATIENT
  Age: 62 Year
  Sex: Male

DRUGS (5)
  1. SULFADIAZINE. [Suspect]
     Active Substance: SULFADIAZINE
     Route: 061
  2. UNSPECIFIED VASOPRESSORS [Concomitant]
  3. METHYLENE BLUE. [Concomitant]
     Active Substance: METHYLENE BLUE
     Route: 042
  4. CYANOKIT [Suspect]
     Active Substance: HYDROXOCOBALAMIN
     Indication: POISONING
     Route: 042
  5. UNSPECIFIED ANTIBIOTICS [Concomitant]
     Active Substance: UNSPECIFIED INGREDIENT

REACTIONS (1)
  - Methaemoglobinaemia [Fatal]
